FAERS Safety Report 7378165-1 (Version None)
Quarter: 2011Q1

REPORT INFORMATION
  Report Type: 
  Country: None (occurrence: None)
  Receive Date: 20110328
  Receipt Date: 20110318
  Transmission Date: 20110831
  Serious: Yes (Hospitalization)
  Sender: FDA-Public Use
  Company Number: A0731203A

PATIENT
  Age: 60 Year
  Sex: Female
  Weight: 176.4 kg

DRUGS (4)
  1. CALCIUM [Concomitant]
  2. AVANDIA [Suspect]
     Dosage: 4MG TWICE PER DAY
     Route: 048
     Dates: start: 20020724, end: 20030303
  3. MULTI-VITAMIN [Concomitant]
  4. LANTUS [Concomitant]

REACTIONS (3)
  - CARDIAC FAILURE CONGESTIVE [None]
  - PAIN [None]
  - INJURY [None]
